FAERS Safety Report 5386748-3 (Version None)
Quarter: 2007Q3

REPORT INFORMATION
  Report Type: 
  Country: None (occurrence: None)
  Receive Date: 20070713
  Receipt Date: 20070702
  Transmission Date: 20080115
  Serious: Yes (Death)
  Sender: FDA-Public Use
  Company Number: US-PFIZER INC-2006126252

PATIENT
  Sex: Male
  Weight: 95.3 kg

DRUGS (4)
  1. CELEBREX [Suspect]
     Indication: PAIN MANAGEMENT
     Route: 048
     Dates: start: 20011003, end: 20011023
  2. VIOXX [Suspect]
     Indication: PAIN
     Route: 048
     Dates: start: 20020517, end: 20020723
  3. ZOCOR [Concomitant]
     Indication: BLOOD CHOLESTEROL INCREASED
     Dates: start: 20011030, end: 20020723
  4. HYDROCODONE BITARTRATE [Concomitant]
     Indication: PAIN
     Dates: start: 20011005, end: 20011010

REACTIONS (1)
  - MYOCARDIAL INFARCTION [None]
